FAERS Safety Report 7006410-0 (Version None)
Quarter: 2010Q3

REPORT INFORMATION
  Report Type: 
  Country: None (occurrence: None)
  Receive Date: 20100921
  Receipt Date: 20100913
  Transmission Date: 20110219
  Serious: Yes (Other)
  Sender: FDA-Public Use
  Company Number: US-AMGEN-QUU437732

PATIENT
  Sex: Male

DRUGS (1)
  1. EPOGEN [Suspect]
     Indication: DIALYSIS

REACTIONS (5)
  - CONVULSION [None]
  - FALL [None]
  - HAEMOGLOBIN DECREASED [None]
  - HIP FRACTURE [None]
  - HYPERHIDROSIS [None]
